FAERS Safety Report 10206368 (Version 2)
Quarter: 2014Q2

REPORT INFORMATION
  Report Type: Spontaneous
  Country: US (occurrence: US)
  Receive Date: 20140530
  Receipt Date: 20140530
  Transmission Date: 20141212
  Serious: Yes (Hospitalization, Other)
  Sender: FDA-Public Use
  Company Number: US-SUN PHARMACEUTICAL INDUSTRIES LTD-2014SUN01053

PATIENT
  Sex: 0

DRUGS (1)
  1. DOXORUBICIN HYDROCHLORIDE INJECTION 2MG/ML [Suspect]
     Indication: PLEOMORPHIC LIPOSARCOMA
     Dosage: 99 MG, ONCE
     Route: 042
     Dates: start: 20140428

REACTIONS (6)
  - Convulsion [Recovered/Resolved]
  - Unevaluable event [Recovered/Resolved]
  - Feeling abnormal [None]
  - Headache [None]
  - Refusal of treatment by patient [None]
  - Infusion related reaction [None]
